FAERS Safety Report 17780800 (Version 2)
Quarter: 2024Q1

REPORT INFORMATION
  Report Type: Report from Study
  Country: US (occurrence: US)
  Receive Date: 20200513
  Receipt Date: 20240213
  Transmission Date: 20240410
  Serious: Yes (Other)
  Sender: FDA-Public Use
  Company Number: US-ACADIA PHARMACEUTICALS INC.-ACA-2019-013928

PATIENT
  Age: 71 Year
  Sex: Male

DRUGS (14)
  1. NUPLAZID [Suspect]
     Active Substance: PIMAVANSERIN TARTRATE
     Indication: Parkinson^s disease psychosis
     Dosage: 34 MG, QD
     Route: 048
     Dates: start: 20190822, end: 20190823
  2. NUPLAZID [Suspect]
     Active Substance: PIMAVANSERIN TARTRATE
     Indication: Hallucination
     Dosage: 34 MILLIGRAM, QD
     Route: 048
     Dates: start: 202101
  3. NUPLAZID [Suspect]
     Active Substance: PIMAVANSERIN TARTRATE
     Indication: Delusion
  4. NUPLAZID [Suspect]
     Active Substance: PIMAVANSERIN TARTRATE
     Indication: Parkinson^s disease
  5. VOLTAREN ARTHRITIS PAIN [Concomitant]
     Active Substance: DICLOFENAC SODIUM
  6. CARBIDOPA\LEVODOPA [Concomitant]
     Active Substance: CARBIDOPA\LEVODOPA
  7. SEROQUEL [Concomitant]
     Active Substance: QUETIAPINE FUMARATE
  8. IBUPROFEN [Concomitant]
     Active Substance: IBUPROFEN
  9. ASPIRIN [Concomitant]
     Active Substance: ASPIRIN
  10. CELECOXIB [Concomitant]
     Active Substance: CELECOXIB
  11. CLONAZEPAM [Concomitant]
     Active Substance: CLONAZEPAM
  12. MELATONIN [Concomitant]
     Active Substance: MELATONIN
  13. LOPRESSOR [Concomitant]
     Active Substance: METOPROLOL TARTRATE
  14. PREVACID [Concomitant]
     Active Substance: LANSOPRAZOLE

REACTIONS (9)
  - Transient ischaemic attack [Unknown]
  - Circulatory collapse [Unknown]
  - Rib fracture [Unknown]
  - Asthenia [Unknown]
  - Muscular weakness [Unknown]
  - Disorientation [Unknown]
  - Confusional state [Unknown]
  - Somnolence [Unknown]
  - Fall [Unknown]

NARRATIVE: CASE EVENT DATE: 20190822
